FAERS Safety Report 9210757 (Version 2)
Quarter: 2013Q2

REPORT INFORMATION
  Report Type: Spontaneous
  Country: US (occurrence: US)
  Receive Date: 20130404
  Receipt Date: 20130514
  Transmission Date: 20140414
  Serious: No
  Sender: FDA-Public Use
  Company Number: US-PFIZER INC-2013105055

PATIENT
  Age: 59 Year
  Sex: Male
  Weight: 94.33 kg

DRUGS (4)
  1. LIPITOR [Suspect]
     Indication: BLOOD CHOLESTEROL INCREASED
     Dosage: 20 MG, 1X/DAY
     Route: 048
  2. ACCUPRIL [Suspect]
     Indication: HYPERTENSION
     Dosage: 80 MG, 1X/DAY
     Route: 048
  3. NEURONTIN [Suspect]
     Indication: NEURALGIA
     Dosage: 600 MG, 2X/DAY
     Route: 048
  4. NOVOLIN 70/30 [Concomitant]
     Indication: DIABETES MELLITUS
     Dosage: UNK

REACTIONS (1)
  - Hypoaesthesia [Unknown]
